FAERS Safety Report 9638771 (Version 2)
Quarter: 2013Q4

REPORT INFORMATION
  Report Type: Spontaneous
  Country: US (occurrence: US)
  Receive Date: 20131022
  Receipt Date: 20131022
  Transmission Date: 20140711
  Serious: No
  Sender: FDA-Public Use
  Company Number: US-BRISTOL-MYERS SQUIBB COMPANY-19193978

PATIENT
  Age: 68 Year
  Sex: Female
  Weight: 59.86 kg

DRUGS (6)
  1. ELIQUIS [Suspect]
     Dates: start: 20130720
  2. LABETALOL HCL TABS 100 MG [Concomitant]
  3. LOSARTAN [Concomitant]
  4. REMERON [Concomitant]
  5. XANAX [Concomitant]
     Indication: ANXIETY
  6. OMEPRAZOLE [Concomitant]

REACTIONS (3)
  - Medication error [Unknown]
  - Nightmare [Unknown]
  - Palpitations [Unknown]
